FAERS Safety Report 9356845 (Version 1)
Quarter: 2013Q2

REPORT INFORMATION
  Report Type: Spontaneous
  Country: FR (occurrence: FR)
  Receive Date: 20130620
  Receipt Date: 20130620
  Transmission Date: 20140414
  Serious: Yes (Hospitalization)
  Sender: FDA-Public Use
  Company Number: FR-ROCHE-1238851

PATIENT
  Age: 72 Year
  Sex: Female

DRUGS (7)
  1. MABTHERA [Suspect]
     Indication: CRYOGLOBULINAEMIA
     Route: 042
     Dates: start: 20130424, end: 20130514
  2. AMLODIPINE [Concomitant]
  3. SIMVASTATIN [Concomitant]
  4. ASPIRIN [Concomitant]
  5. PARACETAMOL [Concomitant]
  6. OMEPRAZOLE [Concomitant]
  7. FUROSEMIDE [Concomitant]

REACTIONS (1)
  - Inflammation [Recovering/Resolving]
